FAERS Safety Report 17036438 (Version 2)
Quarter: 2019Q4

REPORT INFORMATION
  Report Type: Report from Study
  Country: JP (occurrence: JP)
  Receive Date: 20191115
  Receipt Date: 20191217
  Transmission Date: 20200122
  Serious: Yes (Death, Other)
  Sender: FDA-Public Use
  Company Number: JP-ROCHE-2469470

PATIENT
  Age: 70 Year
  Sex: Male
  Weight: 54 kg

DRUGS (3)
  1. OXYCODONE [Suspect]
     Active Substance: OXYCODONE
     Indication: PROCTALGIA
     Route: 048
     Dates: start: 20180816
  2. SYMPROIC [Suspect]
     Active Substance: NALDEMEDINE
     Indication: PRODUCT USED FOR UNKNOWN INDICATION
     Route: 048
     Dates: start: 20181204, end: 20181217
  3. ATEZOLIZUMAB. [Suspect]
     Active Substance: ATEZOLIZUMAB
     Indication: LUNG ADENOCARCINOMA
     Route: 041
     Dates: start: 20180619, end: 20190115

REACTIONS (7)
  - Urinary retention [Not Recovered/Not Resolved]
  - Fall [Unknown]
  - Hyperbilirubinaemia [Fatal]
  - Diarrhoea [Not Recovered/Not Resolved]
  - Blood alkaline phosphatase increased [Fatal]
  - Hepatobiliary disease [Fatal]
  - Foot fracture [Recovered/Resolved]

NARRATIVE: CASE EVENT DATE: 20180828
